FAERS Safety Report 4472750-2 (Version None)
Quarter: 2004Q4

REPORT INFORMATION
  Report Type: 
  Country: None (occurrence: None)
  Receive Date: 20041013
  Receipt Date: 20041007
  Transmission Date: 20050328
  Serious: Yes (Other)
  Sender: FDA-Public Use
  Company Number: US-BRISTOL-MYERS SQUIBB COMPANY-12725271

PATIENT
  Age: 104 Year
  Sex: Female
  Weight: 45 kg

DRUGS (4)
  1. TEQUIN [Suspect]
     Indication: PNEUMONIA
     Route: 051
     Dates: start: 20040901, end: 20041007
  2. LASIX [Concomitant]
  3. ASPIRIN [Concomitant]
     Dosage: DOSAGE FORM: TABLET
  4. ALBUTEROL [Concomitant]
     Route: 055

REACTIONS (1)
  - BLOOD GLUCOSE INCREASED [None]
